FAERS Safety Report 11243929 (Version 2)
Quarter: 2015Q3

REPORT INFORMATION
  Report Type: Spontaneous
  Country: US (occurrence: US)
  Receive Date: 20150707
  Receipt Date: 20150814
  Transmission Date: 20151125
  Serious: Yes (Hospitalization)
  Sender: FDA-Public Use
  Company Number: US-PFIZER INC-2015221863

PATIENT
  Age: 41 Year
  Sex: Male
  Weight: 86 kg

DRUGS (1)
  1. VFEND [Suspect]
     Active Substance: VORICONAZOLE
     Indication: FUNGAL INFECTION
     Dosage: 100 MG, 1X/DAY
     Dates: start: 201505

REACTIONS (1)
  - Leukaemia [Not Recovered/Not Resolved]
